FAERS Safety Report 7371151-7 (Version None)
Quarter: 2011Q1

REPORT INFORMATION
  Report Type: 
  Country: None (occurrence: None)
  Receive Date: 20110324
  Receipt Date: 20100909
  Transmission Date: 20110831
  Serious: Yes (Hospitalization)
  Sender: FDA-Public Use
  Company Number: US-BAYER-201021440NA

PATIENT
  Sex: Female
  Weight: 95.238 kg

DRUGS (9)
  1. YAZ [Suspect]
     Indication: PRODUCT USED FOR UNKNOWN INDICATION
     Route: 048
  2. CYCLOBENZAPRINE [Concomitant]
     Dosage: UNK
     Route: 048
     Dates: start: 20060925
  3. SULFAMETHOXAZOLE AND TRIMETHOPRIM [Concomitant]
     Dosage: UNK
     Route: 048
     Dates: start: 20061003
  4. YASMIN [Suspect]
     Indication: CONTRACEPTION
     Dosage: UNK UNK, QD
     Route: 048
     Dates: start: 20060618, end: 20071204
  5. TRAMADOL [Concomitant]
     Dosage: UNK
     Route: 048
     Dates: start: 20070312
  6. UNCODEABLE ^UNCLASSIFIABLE^ [Concomitant]
     Dosage: UNK UNK, BID
     Route: 048
     Dates: start: 20060816
  7. NAPROXEN [Concomitant]
     Dosage: UNK
     Dates: start: 20071119
  8. PROPOXYPHENE NAPSYLATE W/ ACETAMINOPHEN [Concomitant]
     Dosage: UNK
     Route: 048
     Dates: start: 20061009
  9. DICLOFENAC POTASSIUM [Concomitant]
     Dosage: UNK
     Route: 048
     Dates: start: 20061106

REACTIONS (1)
  - PULMONARY EMBOLISM [None]
